FAERS Safety Report 15885217 (Version 3)
Quarter: 2021Q2

REPORT INFORMATION
  Report Type: Spontaneous
  Country: US (occurrence: US)
  Receive Date: 20190129
  Receipt Date: 20210409
  Transmission Date: 20210716
  Serious: No
  Sender: FDA-Public Use
  Company Number: US-VIFOR (INTERNATIONAL) INC.-VIT-2019-00410

PATIENT
  Age: 71 Year
  Sex: Female
  Weight: 113.95 kg

DRUGS (16)
  1. LISINOPRIL. [Concomitant]
     Active Substance: LISINOPRIL
  2. MULTAQ [Concomitant]
     Active Substance: DRONEDARONE
  3. DILTIAZEM HYDROCHLORIDE. [Concomitant]
     Active Substance: DILTIAZEM HYDROCHLORIDE
  4. CRESTOR [Concomitant]
     Active Substance: ROSUVASTATIN CALCIUM
  5. JANUVIA [Concomitant]
     Active Substance: SITAGLIPTIN PHOSPHATE
  6. LEVEMIR [Concomitant]
     Active Substance: INSULIN DETEMIR
  7. XARELTO [Concomitant]
     Active Substance: RIVAROXABAN
  8. NOVOLOG [Concomitant]
     Active Substance: INSULIN ASPART
  9. LANTUS [Concomitant]
     Active Substance: INSULIN GLARGINE
  10. ALLOPURINOL. [Concomitant]
     Active Substance: ALLOPURINOL
  11. TYLENOL [Concomitant]
     Active Substance: ACETAMINOPHEN
  12. ATENOLOL. [Concomitant]
     Active Substance: ATENOLOL
  13. FISH OIL CONCENTRATE [Concomitant]
     Active Substance: FISH OIL
  14. VELTASSA [Suspect]
     Active Substance: PATIROMER
     Indication: HYPERKALAEMIA
     Route: 048
     Dates: start: 20160217
  15. FERROUS GLUCONATE [Concomitant]
     Active Substance: FERROUS GLUCONATE
  16. DEPAKOTE [Concomitant]
     Active Substance: DIVALPROEX SODIUM

REACTIONS (3)
  - Headache [Not Recovered/Not Resolved]
  - Vaccination complication [Unknown]
  - Product dose omission issue [Not Recovered/Not Resolved]

NARRATIVE: CASE EVENT DATE: 201901
